FAERS Safety Report 14827933 (Version 1)
Quarter: 2018Q2

REPORT INFORMATION
  Report Type: Report from Study
  Country: CA (occurrence: CA)
  Receive Date: 20180430
  Receipt Date: 20180430
  Transmission Date: 20180711
  Serious: Yes (Other)
  Sender: FDA-Public Use
  Company Number: CA-JNJFOC-20180431125

PATIENT
  Sex: Female
  Weight: 55.7 kg

DRUGS (1)
  1. REMICADE [Suspect]
     Active Substance: INFLIXIMAB
     Indication: COLITIS ULCERATIVE
     Dosage: STRENGTH = 100 MG10MG/KG ONCE EVERY 56 DAYS
     Route: 042
     Dates: start: 20170302, end: 20180423

REACTIONS (1)
  - Lupus-like syndrome [Not Recovered/Not Resolved]
